FAERS Safety Report 25267626 (Version 2)
Quarter: 2025Q2

REPORT INFORMATION
  Report Type: Spontaneous
  Country: US (occurrence: US)
  Receive Date: 20250505
  Receipt Date: 20250514
  Transmission Date: 20250717
  Serious: Yes (Life-Threatening, Hospitalization)
  Sender: MACLEODS
  Company Number: US-MLMSERVICE-20250418-PI482555-00256-1

PATIENT

DRUGS (4)
  1. PANTOPRAZOLE [Suspect]
     Active Substance: PANTOPRAZOLE
     Indication: Stress ulcer
  2. PANTOPRAZOLE [Suspect]
     Active Substance: PANTOPRAZOLE
     Indication: Prophylaxis
  3. CARBIDOPA\LEVODOPA [Suspect]
     Active Substance: CARBIDOPA\LEVODOPA
     Indication: Parkinson^s disease
     Dosage: 25 MG/100 MG, (8 HOUR)
  4. HYDROMORPHONE [Concomitant]
     Active Substance: HYDROMORPHONE
     Indication: Pain
     Route: 065

REACTIONS (8)
  - Withdrawal syndrome [Unknown]
  - Acute kidney injury [Unknown]
  - Acidosis [Unknown]
  - Hypervolaemia [Unknown]
  - Rhabdomyolysis [Recovering/Resolving]
  - Parkinsonism hyperpyrexia syndrome [Recovering/Resolving]
  - Product dose omission issue [Unknown]
  - Drug interaction [Recovering/Resolving]
